FAERS Safety Report 23642252 (Version 3)
Quarter: 2024Q2

REPORT INFORMATION
  Report Type: Spontaneous
  Country: US (occurrence: US)
  Receive Date: 20240318
  Receipt Date: 20240410
  Transmission Date: 20240715
  Serious: No
  Sender: FDA-Public Use
  Company Number: US-PFIZER INC-202300233437

PATIENT
  Age: 7 Year
  Sex: Female
  Weight: 20.41 kg

DRUGS (3)
  1. GENOTROPIN [Suspect]
     Active Substance: SOMATROPIN
     Indication: Growth hormone deficiency
     Dosage: NIGHTLY
  2. GENOTROPIN [Suspect]
     Active Substance: SOMATROPIN
     Indication: Kabuki make-up syndrome
     Dosage: UNK
  3. GENOTROPIN [Suspect]
     Active Substance: SOMATROPIN
     Dosage: 0.9 MG, DAILY

REACTIONS (4)
  - Product dose omission issue [Unknown]
  - Expired device used [Unknown]
  - Device power source issue [Unknown]
  - Device mechanical issue [Unknown]

NARRATIVE: CASE EVENT DATE: 20230625
